FAERS Safety Report 8575177-7 (Version None)
Quarter: 2012Q3

REPORT INFORMATION
  Report Type: 
  Country: None (occurrence: None)
  Receive Date: 20120807
  Receipt Date: 20120725
  Transmission Date: 20120928
  Serious: Yes (Other)
  Sender: FDA-Public Use
  Company Number: CH-ELI_LILLY_AND_COMPANY-CH201207007585

PATIENT
  Age: 27 Year
  Sex: Female

DRUGS (3)
  1. CLORAZEPATE DIPOTASSIUM [Concomitant]
     Indication: INSOMNIA
     Dosage: 20 MG, QD
     Dates: start: 20120406
  2. ZOLPIDEM TARTRATE [Concomitant]
     Indication: SLEEP DISORDER
     Dosage: 10 MG, QD
     Dates: start: 20120406
  3. ZYPREXA [Suspect]
     Indication: PERSONALITY DISORDER
     Dosage: 10 MG, QD
     Dates: start: 20110901

REACTIONS (2)
  - MATERNAL EXPOSURE DURING PREGNANCY [None]
  - OFF LABEL USE [None]
